FAERS Safety Report 7247752-3 (Version None)
Quarter: 2011Q1

REPORT INFORMATION
  Report Type: 
  Country: None (occurrence: None)
  Receive Date: 20110127
  Receipt Date: 20110119
  Transmission Date: 20110831
  Serious: Yes (Death, Life-Threatening, Hospitalization)
  Sender: FDA-Public Use
  Company Number: FR-JNJFOC-20101006540

PATIENT
  Age: 76 Year
  Sex: Female

DRUGS (10)
  1. SOLU-MEDROL [Suspect]
     Indication: SCLERITIS
  2. SOLU-MEDROL [Suspect]
  3. ARAVA [Concomitant]
     Indication: RHEUMATOID ARTHRITIS
     Route: 048
  4. CORDARONE [Concomitant]
     Route: 048
  5. REMICADE [Suspect]
     Indication: RHEUMATOID ARTHRITIS
     Route: 042
  6. SOLU-MEDROL [Suspect]
     Indication: RHEUMATOID ARTHRITIS
  7. SOLU-MEDROL [Suspect]
  8. CORTANCYL [Suspect]
     Indication: SCLERITIS
     Route: 048
  9. CORTANCYL [Suspect]
     Indication: RHEUMATOID ARTHRITIS
     Route: 048
  10. CORDARONE [Concomitant]
     Indication: ARRHYTHMIA
     Route: 048

REACTIONS (4)
  - CANDIDIASIS [None]
  - ACUTE RESPIRATORY DISTRESS SYNDROME [None]
  - PNEUMOCYSTIS JIROVECI PNEUMONIA [None]
  - MULTI-ORGAN FAILURE [None]
